FAERS Safety Report 13907870 (Version 1)
Quarter: 2017Q3

REPORT INFORMATION
  Report Type: Spontaneous
  Country: US (occurrence: US)
  Receive Date: 20170825
  Receipt Date: 20170825
  Transmission Date: 20171127
  Serious: Yes (Other)
  Sender: FDA-Public Use
  Company Number: US-ROCHE-1017980

PATIENT
  Age: 13 Year
  Sex: Male
  Weight: 66.8 kg

DRUGS (2)
  1. LUPRON DEPOT [Concomitant]
     Active Substance: LEUPROLIDE ACETATE
     Indication: EPIPHYSES PREMATURE FUSION
     Route: 030
     Dates: start: 200910, end: 201110
  2. NUTROPIN AQ [Suspect]
     Active Substance: SOMATROPIN
     Indication: GROWTH HORMONE DEFICIENCY
     Dosage: 2.6 MG ALTERNATE 2.8 MG. DRUG NAME: NUTROPIN AQ NUSPIN 20
     Route: 058
     Dates: start: 201101, end: 20111013

REACTIONS (1)
  - Papilloedema [Recovering/Resolving]

NARRATIVE: CASE EVENT DATE: 20111013
